FAERS Safety Report 4449159-0 (Version None)
Quarter: 2004Q3

REPORT INFORMATION
  Report Type: 
  Country: None (occurrence: None)
  Receive Date: 20040910
  Receipt Date: 20040831
  Transmission Date: 20050211
  Serious: Yes (Other)
  Sender: FDA-Public Use
  Company Number: 2004061004

PATIENT
  Age: 58 Year
  Sex: Female
  Weight: 48.0813 kg

DRUGS (3)
  1. ROGAINE [Suspect]
     Indication: ALOPECIA
     Dosage: 1 ML, TWICE A DAY, TOPICAL
     Route: 061
     Dates: start: 20040722, end: 20040822
  2. ATENOLOL [Concomitant]
  3. AMLODIPINE BESYLATE [Concomitant]

REACTIONS (2)
  - ABDOMINAL PAIN [None]
  - GASTRITIS [None]
